FAERS Safety Report 4712289-X (Version None)
Quarter: 2005Q3

REPORT INFORMATION
  Report Type: 
  Country: None (occurrence: None)
  Receive Date: 20050712
  Receipt Date: 20050704
  Transmission Date: 20060218
  Serious: Yes (Hospitalization)
  Sender: FDA-Public Use
  Company Number: JP-BRISTOL-MYERS SQUIBB COMPANY-13023759

PATIENT
  Age: 50 Year
  Sex: Male

DRUGS (2)
  1. TAXOL [Suspect]
     Indication: NON-SMALL CELL LUNG CANCER
     Route: 041
     Dates: start: 20050628, end: 20050628
  2. PARAPLATIN [Concomitant]
     Route: 041
     Dates: start: 20050628, end: 20050628

REACTIONS (1)
  - HEMIPLEGIA [None]
